FAERS Safety Report 7150327-8 (Version None)
Quarter: 2010Q4

REPORT INFORMATION
  Report Type: 
  Country: None (occurrence: None)
  Receive Date: 20101210
  Receipt Date: 20101202
  Transmission Date: 20110411
  Serious: No
  Sender: FDA-Public Use
  Company Number: FR-NOVOPROD-317004

PATIENT
  Age: 62 Year
  Sex: Male
  Weight: 180 kg

DRUGS (6)
  1. VICTOZA [Suspect]
     Indication: TYPE 2 DIABETES MELLITUS
     Dosage: 0.6 MG, QD
     Route: 058
     Dates: start: 20100914
  2. VICTOZA [Suspect]
     Dosage: 1.2 MG, QD
     Route: 058
     Dates: start: 20100914
  3. METFORMIN [Concomitant]
     Indication: DIABETES MELLITUS
     Dosage: 1000 MG, QD
     Route: 048
     Dates: start: 20040803
  4. IPERTEN [Concomitant]
     Indication: HYPERTENSION
     Dosage: 10 MG, QD
     Route: 048
     Dates: start: 20061219
  5. EZETIMIBE/SIMVASTATIN [Concomitant]
     Indication: HYPERLIPIDAEMIA
     Dosage: 50 MG, QD
     Route: 048
     Dates: start: 20061219
  6. NISISCO [Concomitant]
     Indication: HYPERTENSION
     Dosage: 185 MG, QD
     Route: 048
     Dates: start: 20040803

REACTIONS (3)
  - DECREASED APPETITE [None]
  - LIPASE INCREASED [None]
  - NAUSEA [None]
